FAERS Safety Report 8955825 (Version 2)
Quarter: 2013Q2

REPORT INFORMATION
  Report Type: Spontaneous
  Country: JP (occurrence: JP)
  Receive Date: 20121210
  Receipt Date: 20130611
  Transmission Date: 20140414
  Serious: Yes (Death)
  Sender: FDA-Public Use
  Company Number: JP-ALEXION PHARMACEUTICALS INC.-A201202292

PATIENT
  Age: 83 Year
  Sex: Male

DRUGS (3)
  1. SOLIRIS 300MG [Suspect]
     Indication: PAROXYSMAL NOCTURNAL HAEMOGLOBINURIA
     Dosage: 900 MG, Q2W
     Route: 042
     Dates: start: 20120905, end: 20121121
  2. PRIMOBOLAN [Concomitant]
     Dosage: 20 MG, QD
     Dates: start: 199608
  3. FERROMIA [Concomitant]
     Dosage: 100 MG, QD
     Dates: start: 199608

REACTIONS (1)
  - Pneumonia [Fatal]
